FAERS Safety Report 5104110-5 (Version None)
Quarter: 2006Q3

REPORT INFORMATION
  Report Type: 
  Country: None (occurrence: None)
  Receive Date: 20060911
  Receipt Date: 20060828
  Transmission Date: 20061208
  Serious: Yes (Hospitalization)
  Sender: FDA-Public Use
  Company Number: 2006-147447-NL

PATIENT
  Age: 89 Year
  Sex: Male

DRUGS (5)
  1. DANAPAROID SODIUM [Suspect]
     Dosage: 3 DF SUBCUTANEOUS
     Route: 058
     Dates: start: 20060707, end: 20060724
  2. PANTOPRAZOLE SODIUM [Concomitant]
  3. FUROSEMIDE [Concomitant]
  4. FERROUS FUMARATE [Concomitant]
  5. POTASSIUM CHLORIDE [Concomitant]

REACTIONS (2)
  - CONDITION AGGRAVATED [None]
  - HEPARIN-INDUCED THROMBOCYTOPENIA [None]
